FAERS Safety Report 7746191-6 (Version None)
Quarter: 2011Q3

REPORT INFORMATION
  Report Type: 
  Country: None (occurrence: None)
  Receive Date: 20110913
  Receipt Date: 20110905
  Transmission Date: 20111222
  Serious: Yes (Other)
  Sender: FDA-Public Use
  Company Number: BR-ROCHE-706991

PATIENT
  Sex: Female
  Weight: 65 kg

DRUGS (1)
  1. ISOTRETINOIN [Suspect]
     Indication: ACNE
     Route: 048
     Dates: start: 20090501

REACTIONS (4)
  - ANAL FISSURE [None]
  - MUCOSAL DRYNESS [None]
  - CONSTIPATION [None]
  - HAEMATOCHEZIA [None]
